FAERS Safety Report 8459037-8 (Version None)
Quarter: 2012Q2

REPORT INFORMATION
  Report Type: 
  Country: None (occurrence: None)
  Receive Date: 20120615
  Receipt Date: 20120530
  Transmission Date: 20120825
  Serious: Yes (Hospitalization)
  Sender: FDA-Public Use
  Company Number: EU-2011-10040

PATIENT
  Sex: Female

DRUGS (15)
  1. SAMSCA [Suspect]
     Indication: HYPONATRAEMIA
     Dosage: 15 MG MILLIGRAM(S), DAILY DOSE, ORAL
     Route: 048
     Dates: start: 20110218, end: 20110219
  2. SAMSCA [Suspect]
     Indication: INAPPROPRIATE ANTIDIURETIC HORMONE SECRETION
     Dosage: 15 MG MILLIGRAM(S), DAILY DOSE, ORAL
     Route: 048
     Dates: start: 20110218, end: 20110219
  3. KALINOR (POTASSIUM CHLORIDE) CAPSULE [Concomitant]
  4. MINIRIN [Concomitant]
  5. NACI (NACI) TABLET [Concomitant]
  6. HYDROCHLOROTHIAZIDE [Concomitant]
  7. IBUPROFEN [Concomitant]
  8. LEVOTHYROXINE SODIUM [Concomitant]
  9. ASTONIN (FLUDROCORTISONE) [Concomitant]
  10. NACI (NACI) CAPSULE [Concomitant]
  11. PANTOPRAZOLE [Concomitant]
  12. HYDROCORTONE [Concomitant]
  13. RINGER (SODIUM CHLORIDE), 0.9% PERCENT [Concomitant]
  14. HEPARIN [Concomitant]
  15. CYP3A4-INHIBITOR [Concomitant]

REACTIONS (8)
  - RAPID CORRECTION OF HYPONATRAEMIA [None]
  - DRUG INTERACTION [None]
  - HYPERTONIA [None]
  - HEADACHE [None]
  - CONFUSIONAL STATE [None]
  - HYPONATRAEMIA [None]
  - PSYCHOMOTOR RETARDATION [None]
  - DISORIENTATION [None]
